FAERS Safety Report 4453600-7 (Version None)
Quarter: 2004Q3

REPORT INFORMATION
  Report Type: 
  Country: None (occurrence: None)
  Receive Date: 20040920
  Receipt Date: 20040907
  Transmission Date: 20050211
  Serious: Yes (Death)
  Sender: FDA-Public Use
  Company Number: FR-JNJFOC-20040607432

PATIENT
  Age: 75 Year
  Sex: Male

DRUGS (14)
  1. SPORANOX [Suspect]
     Indication: ACUTE MYELOID LEUKAEMIA
     Route: 049
     Dates: start: 20030215, end: 20031215
  2. ARACYTINE [Suspect]
     Route: 049
     Dates: start: 20020501, end: 20031202
  3. ARACYTINE [Suspect]
     Route: 049
     Dates: start: 20020501, end: 20031202
  4. ARACYTINE [Suspect]
     Route: 049
     Dates: start: 20020501, end: 20031202
  5. ARACYTINE [Suspect]
     Indication: ACUTE MYELOID LEUKAEMIA
     Route: 049
     Dates: start: 20020501, end: 20031202
  6. ZAVEDOS [Suspect]
     Route: 049
     Dates: start: 20020501, end: 20031202
  7. ZAVEDOS [Suspect]
     Route: 049
     Dates: start: 20020501, end: 20031202
  8. ZAVEDOS [Suspect]
     Route: 049
     Dates: start: 20020501, end: 20031202
  9. ZAVEDOS [Suspect]
     Indication: ACUTE MYELOID LEUKAEMIA
     Route: 049
     Dates: start: 20020501, end: 20031202
  10. BELUSTINE [Suspect]
     Route: 049
     Dates: start: 20020501, end: 20031202
  11. BELUSTINE [Suspect]
     Route: 049
     Dates: start: 20020501, end: 20031202
  12. BELUSTINE [Suspect]
     Route: 049
     Dates: start: 20020501, end: 20031202
  13. BELUSTINE [Suspect]
     Indication: ACUTE MYELOID LEUKAEMIA
     Route: 049
     Dates: start: 20020501, end: 20031202
  14. NILEVAR [Suspect]
     Indication: DRUG USE FOR UNKNOWN INDICATION
     Route: 049

REACTIONS (6)
  - CYTOLYTIC HEPATITIS [None]
  - GENERAL PHYSICAL HEALTH DETERIORATION [None]
  - INSOMNIA [None]
  - JAUNDICE [None]
  - PANCYTOPENIA [None]
  - TUMOUR LYSIS SYNDROME [None]
